FAERS Safety Report 8898927 (Version 1)
Quarter: 2012Q4

REPORT INFORMATION
  Report Type: 
  Country: US (occurrence: US)
  Receive Date: 20121108
  Receipt Date: 20121108
  Transmission Date: 20130627
  Serious: No
  Sender: FDA-Public Use
  Company Number: US-AMGEN-USASP2012033943

PATIENT
  Age: 66 Year
  Sex: Male
  Weight: 90.7 kg

DRUGS (6)
  1. ENBREL [Suspect]
     Indication: PRODUCT USED FOR UNKNOWN INDICATION
     Dosage: 50 mg, qwk
     Route: 058
  2. MELOXICAM [Concomitant]
     Dosage: 2.5 mg, UNK
  3. ATENOLOL [Concomitant]
     Dosage: 50 mg, UNK
  4. LOSARTAN + HIDROCLOROTIAZIDA [Concomitant]
  5. ALLOPURINOL [Concomitant]
     Dosage: 100 mg, UNK
  6. FISH OIL [Concomitant]
     Dosage: UNK

REACTIONS (2)
  - Hot flush [Unknown]
  - Night sweats [Unknown]
